FAERS Safety Report 4334877-5 (Version None)
Quarter: 2004Q2

REPORT INFORMATION
  Report Type: 
  Country: None (occurrence: None)
  Receive Date: 20040408
  Receipt Date: 20040401
  Transmission Date: 20050107
  Serious: Yes (Hospitalization)
  Sender: FDA-Public Use
  Company Number: 200411391FR

PATIENT
  Age: 75 Year
  Sex: Female

DRUGS (6)
  1. LASIX [Suspect]
     Route: 048
     Dates: start: 20000615, end: 20040227
  2. ALDACTONE [Suspect]
     Route: 048
     Dates: start: 20000615, end: 20040227
  3. ENDOTELON [Suspect]
     Route: 048
     Dates: start: 20010615, end: 20040227
  4. AMOXICILLIN [Suspect]
     Route: 048
     Dates: end: 20040226
  5. APROVEL [Suspect]
     Route: 048
     Dates: start: 20000615, end: 20040228
  6. TEGELINE [Suspect]
     Route: 042
     Dates: start: 20040224, end: 20040226

REACTIONS (3)
  - PYREXIA [None]
  - RENAL FAILURE ACUTE [None]
  - URINARY TRACT INFECTION [None]
